FAERS Safety Report 13247381 (Version 1)
Quarter: 2017Q1

REPORT INFORMATION
  Report Type: Spontaneous
  Country: FR (occurrence: FR)
  Receive Date: 20170217
  Receipt Date: 20170217
  Transmission Date: 20170428
  Serious: Yes (Hospitalization)
  Sender: FDA-Public Use
  Company Number: FR-PFIZER INC-2017067023

PATIENT
  Age: 25 Year
  Sex: Male

DRUGS (8)
  1. SOLU-MEDROL [Suspect]
     Active Substance: METHYLPREDNISOLONE SODIUM SUCCINATE
     Dosage: 1000 MG, 1X/DAY
     Route: 042
  2. LYRICA [Suspect]
     Active Substance: PREGABALIN
     Indication: PAIN
     Dosage: 75 MG IN THE MORNING AND 100 MG IN THE EVENING
     Route: 048
  3. KARDEGIC [Suspect]
     Active Substance: ASPIRIN LYSINE
     Indication: CARDIAC VALVE PROSTHESIS USER
     Dosage: 160 MG (1 SACHET), 1X/DAY
     Route: 048
  4. LAROXYL [Suspect]
     Active Substance: AMITRIPTYLINE
     Indication: PAIN
     Dosage: 7 GTT, 1X/DAY
     Route: 048
  5. LASILIX FAIBLE [Suspect]
     Active Substance: FUROSEMIDE
     Dosage: 40 MG (2 TABLETS), 1X/DAY
     Route: 048
  6. DIFFU K [Suspect]
     Active Substance: POTASSIUM CHLORIDE
     Dosage: 2 DF, 3X/DAY
     Route: 048
  7. DOLIPRANE [Suspect]
     Active Substance: ACETAMINOPHEN
     Dosage: 1 G, 1X/DAY
     Route: 048
  8. INEXIUM /01479302/ [Suspect]
     Active Substance: ESOMEPRAZOLE MAGNESIUM
     Indication: PROPHYLAXIS
     Dosage: 40 MG, 1X/DAY
     Route: 048

REACTIONS (1)
  - Hepatocellular injury [Not Recovered/Not Resolved]

NARRATIVE: CASE EVENT DATE: 20170101
